FAERS Safety Report 4533591-0 (Version None)
Quarter: 2004Q4

REPORT INFORMATION
  Report Type: 
  Country: None (occurrence: None)
  Receive Date: 20041221
  Receipt Date: 20041208
  Transmission Date: 20050328
  Serious: Yes (Other)
  Sender: FDA-Public Use
  Company Number: PHRM2004FR03636

PATIENT
  Age: 33 Year
  Sex: Female

DRUGS (1)
  1. PARLODEL [Suspect]
     Indication: SUPPRESSED LACTATION
     Dosage: 2.5 MG, QD
     Route: 048
     Dates: end: 20041204

REACTIONS (6)
  - ACUTE TONSILLITIS [None]
  - ARTHRALGIA [None]
  - PRURITUS [None]
  - PYREXIA [None]
  - RASH MACULO-PAPULAR [None]
  - VIRAL INFECTION [None]
